FAERS Safety Report 17349601 (Version 1)
Quarter: 2020Q1

REPORT INFORMATION
  Report Type: Spontaneous
  Country: US (occurrence: US)
  Receive Date: 20200130
  Receipt Date: 20200130
  Transmission Date: 20200409
  Serious: No
  Sender: FDA-Public Use
  Company Number: US-LUPIN PHARMACEUTICALS INC.-2019-08293

PATIENT
  Age: 35 Year
  Sex: Female
  Weight: 29.93 kg

DRUGS (1)
  1. SERTRALINE HYDROCHLORIDE TABLETS USP, 50 MG [Suspect]
     Active Substance: SERTRALINE HYDROCHLORIDE
     Indication: PERINATAL DEPRESSION
     Dosage: UNK UNK, QD
     Route: 048
     Dates: start: 20191125

REACTIONS (2)
  - Off label use [Unknown]
  - Insomnia [Not Recovered/Not Resolved]

NARRATIVE: CASE EVENT DATE: 20191125
